FAERS Safety Report 16090731 (Version 1)
Quarter: 2019Q1

REPORT INFORMATION
  Report Type: Report from Study
  Country: IT (occurrence: IT)
  Receive Date: 20190319
  Receipt Date: 20190319
  Transmission Date: 20190418
  Serious: Yes (Hospitalization)
  Sender: FDA-Public Use
  Company Number: IT-MYLANLABS-2019M1024159

PATIENT
  Age: 76 Year
  Sex: Female

DRUGS (9)
  1. OLANZAPINE. [Suspect]
     Active Substance: OLANZAPINE
     Indication: DEPRESSION
     Dosage: 2 DOSAGE FORM, QD
     Route: 048
     Dates: start: 20180701, end: 20180716
  2. TIMOPTOL [Concomitant]
     Active Substance: TIMOLOL
  3. TAREG [Concomitant]
     Active Substance: VALSARTAN
  4. HALCION [Concomitant]
     Active Substance: TRIAZOLAM
  5. LENTO-KALIUM [Concomitant]
     Active Substance: POTASSIUM CHLORIDE
  6. XANAX [Concomitant]
     Active Substance: ALPRAZOLAM
  7. TAPAZOLE [Concomitant]
     Active Substance: METHIMAZOLE
  8. PANTORC [Concomitant]
     Active Substance: PANTOPRAZOLE SODIUM
  9. CARDICOR [Concomitant]
     Active Substance: BISOPROLOL

REACTIONS (4)
  - Decreased appetite [Recovering/Resolving]
  - Dyspnoea [Recovering/Resolving]
  - Asthenia [Recovering/Resolving]
  - Panic attack [Recovering/Resolving]

NARRATIVE: CASE EVENT DATE: 20180716
